FAERS Safety Report 13546576 (Version 1)
Quarter: 2017Q2

REPORT INFORMATION
  Report Type: Spontaneous
  Country: US (occurrence: US)
  Receive Date: 20170515
  Receipt Date: 20170515
  Transmission Date: 20170830
  Serious: Yes (Other)
  Sender: FDA-Public Use
  Company Number: None

PATIENT
  Age: 61 Year
  Sex: Female
  Weight: 99.9 kg

DRUGS (6)
  1. SYNTHROID [Concomitant]
     Active Substance: LEVOTHYROXINE SODIUM
  2. PROBIOTICS [Concomitant]
     Active Substance: PROBIOTICS NOS
  3. TELMISARTAN 20 MG TAB [Suspect]
     Active Substance: TELMISARTAN
     Indication: HYPERTENSION
     Dosage: ?          QUANTITY:1 TABLET(S);?
     Route: 048
     Dates: start: 20170501, end: 20170511
  4. VITAMIN D [Concomitant]
     Active Substance: CHOLECALCIFEROL
  5. LIALDA [Concomitant]
     Active Substance: MESALAMINE
  6. VITAMIN K [Concomitant]
     Active Substance: PHYTONADIONE

REACTIONS (1)
  - Upper respiratory tract infection [None]

NARRATIVE: CASE EVENT DATE: 20170511
